FAERS Safety Report 18200800 (Version 2)
Quarter: 2020Q4

REPORT INFORMATION
  Report Type: Spontaneous
  Country: US (occurrence: US)
  Receive Date: 20200826
  Receipt Date: 20201005
  Transmission Date: 20210113
  Serious: No
  Sender: FDA-Public Use
  Company Number: US-SA-2020SA226869

PATIENT

DRUGS (2)
  1. DUPIXENT [Suspect]
     Active Substance: DUPILUMAB
     Indication: DERMATITIS ATOPIC
     Dosage: 300 MG, QOW (STRENGTH: 300 MG/2ML)
     Route: 058
     Dates: start: 202007, end: 2020
  2. DUPIXENT [Suspect]
     Active Substance: DUPILUMAB
     Dosage: 200 MG, QOW (STRENGTH: 200 MG/1.14)
     Route: 058
     Dates: start: 20200811

REACTIONS (5)
  - Eye swelling [Unknown]
  - Eye inflammation [Unknown]
  - Pain [Unknown]
  - Eye pruritus [Unknown]
  - Periorbital swelling [Unknown]

NARRATIVE: CASE EVENT DATE: 2020
